FAERS Safety Report 4961880-4 (Version None)
Quarter: 2006Q1

REPORT INFORMATION
  Report Type: 
  Country: None (occurrence: None)
  Receive Date: 20060329
  Receipt Date: 20060321
  Transmission Date: 20060701
  Serious: Yes (Death, Hospitalization)
  Sender: FDA-Public Use
  Company Number: TPA2006A00459

PATIENT
  Age: 80 Year
  Sex: Male

DRUGS (9)
  1. ROZEREM [Suspect]
     Indication: INSOMNIA
     Dosage: PER ORAL
     Route: 048
     Dates: start: 20060217
  2. PROZAC [Concomitant]
  3. TOPROL-XL [Concomitant]
  4. COATED ASA (ACETYLSALICYLIC ACID) [Concomitant]
  5. COMBIVENT INHALER (SALBUTAMOL W/IPRATROPIUM) (INHALANT) [Concomitant]
  6. ALBUTEROL INHALER (SALBUTAMOL) (INHALANT) [Concomitant]
  7. ADVAIR INHALER (SERETIDE MITE) (INHALANT) [Concomitant]
  8. VITAMIN E [Concomitant]
  9. MULTIVITAMIN [Concomitant]

REACTIONS (3)
  - ANAEMIA [None]
  - METABOLIC ACIDOSIS [None]
  - MYOCARDIAL INFARCTION [None]
